FAERS Safety Report 6077044-X (Version None)
Quarter: 2009Q1

REPORT INFORMATION
  Report Type: 
  Country: None (occurrence: None)
  Receive Date: 20090213
  Receipt Date: 20090203
  Transmission Date: 20090719
  Serious: Yes (Hospitalization, Other)
  Sender: FDA-Public Use
  Company Number: US-JNJFOC-20090200901

PATIENT
  Sex: Male
  Weight: 94.8 kg

DRUGS (10)
  1. REMICADE [Suspect]
     Indication: RHEUMATOID ARTHRITIS
     Route: 042
  2. FOSAMAX [Concomitant]
     Indication: RHEUMATOID ARTHRITIS
  3. MALARIA MEDICATION [Concomitant]
  4. CARVEDILOL [Concomitant]
     Indication: CARDIAC DISORDER
  5. ISOSORBIDE MONONITRATE [Concomitant]
     Indication: ANGINA PECTORIS
  6. OMEPRAZOLE [Concomitant]
     Indication: HERNIA
  7. ATORVASTATIN [Concomitant]
     Indication: BLOOD CHOLESTEROL INCREASED
  8. WARFARIN SODIUM [Concomitant]
     Indication: CARDIOVASCULAR EVENT PROPHYLAXIS
  9. FUROSEMIDE [Concomitant]
     Indication: CARDIOVASCULAR EVENT PROPHYLAXIS
  10. LISINOPRIL [Concomitant]
     Indication: CARDIAC DISORDER

REACTIONS (6)
  - ARTHRITIS [None]
  - CHEST PAIN [None]
  - COUGH [None]
  - HYPOAESTHESIA [None]
  - LUNG NEOPLASM MALIGNANT [None]
  - MYOCARDIAL INFARCTION [None]
